FAERS Safety Report 14438385 (Version 2)
Quarter: 2018Q1

REPORT INFORMATION
  Report Type: Spontaneous
  Country: US (occurrence: US)
  Receive Date: 20180125
  Receipt Date: 20180130
  Transmission Date: 20180509
  Serious: No
  Sender: FDA-Public Use
  Company Number: US-PFIZER INC-2018035206

PATIENT
  Age: 63 Year
  Sex: Female
  Weight: 87.9 kg

DRUGS (2)
  1. LYRICA [Suspect]
     Active Substance: PREGABALIN
     Indication: DIABETIC NEUROPATHY
     Dosage: 75 MG, 2X/DAY (75 MG CAPSULES BY MOUTH TWICE A DAY)
     Route: 048
     Dates: start: 201707
  2. LYRICA [Suspect]
     Active Substance: PREGABALIN
     Dosage: UNK UNK, 3X/DAY
     Route: 048
     Dates: start: 201801

REACTIONS (2)
  - Breakthrough pain [Recovering/Resolving]
  - Feeling cold [Unknown]
